FAERS Safety Report 5038049-0 (Version None)
Quarter: 2006Q2

REPORT INFORMATION
  Report Type: 
  Country: None (occurrence: None)
  Receive Date: 20060601
  Receipt Date: 20060131
  Transmission Date: 20061013
  Serious: No
  Sender: FDA-Public Use
  Company Number: 2006PV007970

PATIENT
  Age: 63 Year
  Sex: Male
  Weight: 117.9352 kg

DRUGS (5)
  1. BYETTA [Suspect]
     Indication: DIABETES MELLITUS NON-INSULIN-DEPENDENT
     Dosage: 10 MCG;BID;SC, 5 MCG, BID;SC
     Route: 058
     Dates: start: 20051201, end: 20060201
  2. BYETTA [Suspect]
     Indication: DIABETES MELLITUS NON-INSULIN-DEPENDENT
     Dosage: 10 MCG;BID;SC, 5 MCG, BID;SC
     Route: 058
     Dates: start: 20060201
  3. BYETTA [Suspect]
  4. METFORMIN [Concomitant]
  5. ACTOPLUS MET [Concomitant]

REACTIONS (5)
  - DIZZINESS [None]
  - INJECTION SITE BRUISING [None]
  - INJECTION SITE IRRITATION [None]
  - MEDICATION ERROR [None]
  - NAUSEA [None]
